FAERS Safety Report 16973301 (Version 6)
Quarter: 2020Q1

REPORT INFORMATION
  Report Type: Report from Study
  Country: None (occurrence: JP)
  Receive Date: 20191030
  Receipt Date: 20200303
  Transmission Date: 20200409
  Serious: Yes (Hospitalization)
  Sender: FDA-Public Use
  Company Number: JP-ABBVIE-19P-087-2983400-00

PATIENT
  Age: 44 Year
  Sex: Male
  Weight: 61.8 kg

DRUGS (1)
  1. PROCRIN [Suspect]
     Active Substance: LEUPROLIDE ACETATE
     Indication: BULBOSPINAL MUSCULAR ATROPHY CONGENITAL
     Dosage: 11.25 MILLIGRAM, Q3MONTHS
     Route: 058
     Dates: start: 20180804

REACTIONS (5)
  - Tibia fracture [Recovered/Resolved with Sequelae]
  - Fall [Recovered/Resolved with Sequelae]
  - Lipid metabolism disorder [Unknown]
  - Fibula fracture [Recovered/Resolved with Sequelae]
  - Hepatic function abnormal [Unknown]

NARRATIVE: CASE EVENT DATE: 20190716
